FAERS Safety Report 17629037 (Version 1)
Quarter: 2020Q2

REPORT INFORMATION
  Report Type: Spontaneous
  Country: US (occurrence: US)
  Receive Date: 20200406
  Receipt Date: 20200406
  Transmission Date: 20200713
  Serious: No
  Sender: FDA-Public Use
  Company Number: US-ALLERGAN-1929341US

PATIENT
  Age: 60 Year
  Sex: Female
  Weight: 60.33 kg

DRUGS (2)
  1. MESALAZINE - BP [Suspect]
     Active Substance: MESALAMINE
     Indication: RECTAL DISCHARGE
     Dosage: 1000 MG, QD
     Route: 054
     Dates: end: 20190711
  2. SYNTHROID [Concomitant]
     Active Substance: LEVOTHYROXINE SODIUM
     Indication: HYPOTHYROIDISM
     Dosage: 0.05 MG, QD
     Route: 048
     Dates: start: 2004

REACTIONS (8)
  - Haemorrhage [Unknown]
  - Off label use [Unknown]
  - Hypersensitivity [Unknown]
  - Condition aggravated [Recovering/Resolving]
  - Rash [Unknown]
  - Pruritus [Unknown]
  - Diarrhoea haemorrhagic [Recovered/Resolved]
  - Abdominal pain upper [Unknown]

NARRATIVE: CASE EVENT DATE: 201907
